FAERS Safety Report 8535220-8 (Version None)
Quarter: 2012Q3

REPORT INFORMATION
  Report Type: 
  Country: None (occurrence: None)
  Receive Date: 20120724
  Receipt Date: 20120720
  Transmission Date: 20120928
  Serious: Yes (Other)
  Sender: FDA-Public Use
  Company Number: IE-AMGEN-IRLSP2012045442

PATIENT
  Age: 69 Year
  Sex: Female
  Weight: 75 kg

DRUGS (6)
  1. VENTOLIN [Concomitant]
     Indication: ASTHMA
     Dosage: 100 MUG, PRN
     Route: 055
  2. PROLIA [Suspect]
     Indication: OSTEOPOROSIS
     Dosage: 60 MG, Q6MO
     Route: 058
     Dates: start: 20101217, end: 20120111
  3. SEROQUEL [Concomitant]
     Indication: DEPRESSION
     Dosage: 12.5 MG, UNK
  4. SYMBICORT [Concomitant]
     Indication: ASTHMA
     Dosage: 400 MCG AND 12 MCG
     Route: 055
  5. PROZAC [Concomitant]
     Indication: DEPRESSION
     Dosage: 20 MG, UNK
  6. MOVICOL                            /01625101/ [Concomitant]
     Indication: CONSTIPATION
     Dosage: 2 OR 3 SACHETS DAILY

REACTIONS (8)
  - CATARACT [None]
  - NAIL DISORDER [None]
  - VISION BLURRED [None]
  - HYPERHIDROSIS [None]
  - PAIN IN EXTREMITY [None]
  - BRONCHOPULMONARY ASPERGILLOSIS ALLERGIC [None]
  - MUSCLE SPASMS [None]
  - DRY SKIN [None]
